FAERS Safety Report 24620564 (Version 1)
Quarter: 2024Q4

REPORT INFORMATION
  Report Type: Other
  Country: TR (occurrence: TR)
  Receive Date: 20241114
  Receipt Date: 20241114
  Transmission Date: 20250115
  Serious: Yes (Life-Threatening, Hospitalization, Other)
  Sender: OMNIVIUM PHARMACEUTICALS LLC
  Company Number: TR-Omnivium Pharmaceuticals LLC-2165041

PATIENT
  Age: 15 Year
  Sex: Female

DRUGS (1)
  1. ISONIAZID [Suspect]
     Active Substance: ISONIAZID
     Indication: Product used for unknown indication

REACTIONS (7)
  - Status epilepticus [Recovering/Resolving]
  - Intentional overdose [Unknown]
  - Toxicity to various agents [Recovering/Resolving]
  - Hepatomegaly [Recovering/Resolving]
  - Toxic encephalopathy [Recovering/Resolving]
  - Hypersensitivity myocarditis [Recovering/Resolving]
  - Shock [Recovering/Resolving]
